FAERS Safety Report 8484040-1 (Version None)
Quarter: 2012Q3

REPORT INFORMATION
  Report Type: 
  Country: None (occurrence: None)
  Receive Date: 20120703
  Receipt Date: 20120619
  Transmission Date: 20120928
  Serious: Yes (Death)
  Sender: FDA-Public Use
  Company Number: ES-CELGENEUS-144-50794-11102061

PATIENT

DRUGS (2)
  1. VIDAZA [Suspect]
     Route: 065
  2. VIDAZA [Suspect]

REACTIONS (6)
  - DEATH [None]
  - ACUTE GRAFT VERSUS HOST DISEASE [None]
  - ACUTE MYELOID LEUKAEMIA [None]
  - GRAFT VERSUS HOST DISEASE [None]
  - MYELODYSPLASTIC SYNDROME [None]
  - NO THERAPEUTIC RESPONSE [None]
